FAERS Safety Report 4262308-2 (Version None)
Quarter: 2004Q1

REPORT INFORMATION
  Report Type: 
  Country: None (occurrence: None)
  Receive Date: 20040102
  Receipt Date: 20031114
  Transmission Date: 20041129
  Serious: Yes (Death, Other)
  Sender: FDA-Public Use
  Company Number: PHBS2003JP12852

PATIENT
  Age: 79 Year
  Sex: Male
  Weight: 50 kg

DRUGS (9)
  1. TEGRETOL [Suspect]
     Indication: CONVULSION
     Dosage: 400 MG/DAY
     Route: 048
     Dates: start: 20031103, end: 20031110
  2. VALPROATE SODIUM [Suspect]
     Indication: CONVULSION
     Dosage: 800 MG/DAY
     Route: 048
     Dates: start: 20030814, end: 20031030
  3. VALPROATE SODIUM [Suspect]
     Dosage: 1.2 G/DAY
     Route: 048
     Dates: start: 20031101, end: 20031110
  4. DIGILANOGEN C [Concomitant]
     Indication: CARDIAC FAILURE
     Dosage: 0.2 MG/DAY
     Route: 065
     Dates: start: 20031105
  5. ASPARA K [Concomitant]
     Indication: HYPOKALAEMIA
     Dosage: 20 ML/DAY
     Route: 065
     Dates: start: 20031025
  6. FIRSTCIN [Concomitant]
     Indication: PNEUMONIA
     Dosage: 2 G/DAY
     Route: 065
     Dates: start: 20031105, end: 20031111
  7. TAKEPRON [Concomitant]
     Indication: GASTRITIS HAEMORRHAGIC
     Dosage: 15 MG/DAY
     Route: 048
     Dates: start: 20031028, end: 20031113
  8. PONTAL [Concomitant]
     Indication: PYREXIA
     Dosage: 24 ML/DAY
     Route: 048
     Dates: start: 20031103, end: 20031113
  9. SOLDACTONE [Concomitant]
     Indication: CARDIAC FAILURE
     Dosage: 200 MG/DAY
     Route: 065
     Dates: start: 20031105, end: 20031130

REACTIONS (2)
  - CARDIO-RESPIRATORY ARREST [None]
  - THROMBOCYTOPENIA [None]
